FAERS Safety Report 13968246 (Version 1)
Quarter: 2017Q3

REPORT INFORMATION
  Report Type: Spontaneous
  Country: US (occurrence: US)
  Receive Date: 20170914
  Receipt Date: 20170914
  Transmission Date: 20171128
  Serious: No
  Sender: FDA-Public Use
  Company Number: US-PERRIGO-16US021537

PATIENT
  Age: 47 Year
  Sex: Female
  Weight: 58.5 kg

DRUGS (2)
  1. THYROID THERAPY [Concomitant]
     Active Substance: UNSPECIFIED INGREDIENT
     Indication: HYPOTHYROIDISM
     Dosage: UNK
     Route: 065
  2. MINOXIDIL. [Suspect]
     Active Substance: MINOXIDIL
     Indication: ALOPECIA
     Dosage: 1 ML, BID
     Route: 061
     Dates: start: 20161024, end: 20161102

REACTIONS (2)
  - Condition aggravated [Unknown]
  - Drug administered at inappropriate site [Recovered/Resolved]

NARRATIVE: CASE EVENT DATE: 20161024
